FAERS Safety Report 21597564 (Version 1)
Quarter: 2022Q4

REPORT INFORMATION
  Report Type: Spontaneous
  Country: US (occurrence: US)
  Receive Date: 20221115
  Receipt Date: 20221115
  Transmission Date: 20230112
  Serious: No
  Sender: FDA-Public Use
  Company Number: US-AMNEAL PHARMACEUTICALS-2022-AMRX-02531

PATIENT
  Age: 15 Year
  Sex: Female

DRUGS (1)
  1. ISOTRETINOIN [Suspect]
     Active Substance: ISOTRETINOIN
     Indication: Product used for unknown indication
     Dosage: 30 MG ORAL CAPSULE
     Route: 048
     Dates: start: 20220501, end: 20220712

REACTIONS (2)
  - Blood triglycerides increased [Unknown]
  - Malaise [Unknown]

NARRATIVE: CASE EVENT DATE: 20220712
